FAERS Safety Report 4274084-8 (Version None)
Quarter: 2004Q1

REPORT INFORMATION
  Report Type: 
  Country: None (occurrence: None)
  Receive Date: 20040120
  Receipt Date: 20040105
  Transmission Date: 20041129
  Serious: Yes (Hospitalization)
  Sender: FDA-Public Use
  Company Number: US-GLAXOSMITHKLINE-A0491156A

PATIENT
  Age: 66 Year
  Sex: Female

DRUGS (4)
  1. LANOXIN [Suspect]
     Indication: ATRIAL FIBRILLATION
     Route: 065
  2. TRACLEER [Suspect]
     Dosage: 62.5MG TWICE PER DAY
     Route: 048
     Dates: start: 20020114, end: 20030826
  3. REMERON [Concomitant]
  4. MIRTAZAPINE [Concomitant]
     Indication: MAJOR DEPRESSION

REACTIONS (8)
  - ALANINE AMINOTRANSFERASE INCREASED [None]
  - ASPARTATE AMINOTRANSFERASE INCREASED [None]
  - ASTHENIA [None]
  - BLOOD ALKALINE PHOSPHATASE INCREASED [None]
  - BLOOD BILIRUBIN INCREASED [None]
  - DYSPNOEA [None]
  - THERAPEUTIC AGENT TOXICITY [None]
  - WEIGHT DECREASED [None]
